APPROVED DRUG PRODUCT: AMABELZ
Active Ingredient: ESTRADIOL; NORETHINDRONE ACETATE
Strength: 0.5MG;0.1MG
Dosage Form/Route: TABLET;ORAL
Application: A203339 | Product #001 | TE Code: BX
Applicant: LUPIN LTD
Approved: Jun 20, 2016 | RLD: No | RS: No | Type: RX